FAERS Safety Report 9052289 (Version 2)
Quarter: 2013Q1

REPORT INFORMATION
  Report Type: Spontaneous
  Country: GB (occurrence: GB)
  Receive Date: 20130206
  Receipt Date: 20130215
  Transmission Date: 20140127
  Serious: Yes (Other)
  Sender: FDA-Public Use
  Company Number: GB-009507513-1302GBR000161

PATIENT
  Age: 50 Year
  Sex: Male

DRUGS (3)
  1. ISENTRESS [Suspect]
     Indication: HIV INFECTION
     Dosage: UNK, QD
     Route: 048
     Dates: start: 2007
  2. DARUNAVIR [Concomitant]
  3. ETRAVIRINE [Concomitant]

REACTIONS (1)
  - Renal impairment [Unknown]
